FAERS Safety Report 10116896 (Version 2)
Quarter: 2014Q4

REPORT INFORMATION
  Report Type: Other
  Country: US (occurrence: US)
  Receive Date: 20140426
  Receipt Date: 20141023
  Transmission Date: 20150528
  Serious: Yes (Hospitalization, Other)
  Sender: FDA-Public Use
  Company Number: US-GSKPPD-2014GSK015903

PATIENT
  Age: 66 Year
  Sex: Male

DRUGS (10)
  1. AVANDIA [Suspect]
     Active Substance: ROSIGLITAZONE MALEATE
     Indication: DIABETES MELLITUS
     Dosage: DATES OF AVANDIA USE AND DOSE COULD NOT BE CONFIRMED IN RECORDS REVIEWED.
     Route: 048
  2. ATENOLOL. [Concomitant]
     Active Substance: ATENOLOL
     Dosage: TREATMENT MEDICATION
  3. AMIODARONE [Concomitant]
     Active Substance: AMIODARONE
     Route: 048
  4. LOVENOX [Concomitant]
     Active Substance: ENOXAPARIN SODIUM
     Dosage: TREATMENT MEDICATION
  5. ASPIRIN. [Concomitant]
     Active Substance: ASPIRIN
     Dosage: TREATMENT MEDICATION
     Route: 048
  6. DOFETILIDE [Concomitant]
     Active Substance: DOFETILIDE
     Dosage: TREATMENT MEDICATION
     Dates: start: 20070725
  7. LABETALOL [Concomitant]
     Active Substance: LABETALOL\LABETALOL HYDROCHLORIDE
     Dosage: TREATMENT MEDICATION
  8. CARVEDILOL. [Concomitant]
     Active Substance: CARVEDILOL
  9. FUROSEMIDE. [Concomitant]
     Active Substance: FUROSEMIDE
     Route: 048
  10. ASPIRIN. [Concomitant]
     Active Substance: ASPIRIN
     Route: 048

REACTIONS (1)
  - Acute myocardial infarction [Recovered/Resolved]

NARRATIVE: CASE EVENT DATE: 20070728
